FAERS Safety Report 14010292 (Version 4)
Quarter: 2019Q3

REPORT INFORMATION
  Report Type: Report from Study
  Country: CN (occurrence: CN)
  Receive Date: 20170926
  Receipt Date: 20190909
  Transmission Date: 20191004
  Serious: Yes (Hospitalization)
  Sender: FDA-Public Use
  Company Number: CN-ROCHE-1997168

PATIENT
  Age: 47 Year
  Sex: Male
  Weight: 61.5 kg

DRUGS (5)
  1. RECOMBINANT HUMAN THROMBOPOIETIN [Concomitant]
     Active Substance: THROMBOPOIETIN
     Indication: PLATELET COUNT INCREASED
     Route: 065
     Dates: start: 20170908, end: 20170909
  2. DIAMMONIUM GLYCYRRHIZINATE [Concomitant]
     Active Substance: HERBALS\DIAMMONIUM GLYCYRRHIZINATE
     Dosage: ENTERIC COATED
     Route: 065
     Dates: start: 20170819, end: 20170905
  3. DIAMMONIUM GLYCYRRHIZINATE [Concomitant]
     Active Substance: HERBALS\DIAMMONIUM GLYCYRRHIZINATE
     Dosage: ENTERIC COATED
     Route: 065
     Dates: start: 20170908, end: 20170913
  4. BICYCLOL [Concomitant]
     Active Substance: BICYCLOL
     Dosage: PROTECT THE LIVER
     Route: 065
     Dates: start: 20161109
  5. ATEZOLIZUMAB. [Suspect]
     Active Substance: ATEZOLIZUMAB
     Indication: NON-SMALL CELL LUNG CANCER
     Dosage: MOST RECENT DOSE (1200 MG, ONCE PER 3 WEEKS): 18/AUG/2017
     Route: 042
     Dates: start: 20161111

REACTIONS (1)
  - Hepatic function abnormal [Recovered/Resolved]

NARRATIVE: CASE EVENT DATE: 20170907
